FAERS Safety Report 22359386 (Version 1)
Quarter: 2023Q2

REPORT INFORMATION
  Report Type: Other
  Country: GB (occurrence: GB)
  Receive Date: 20230524
  Receipt Date: 20230524
  Transmission Date: 20230721
  Serious: Yes (Other)
  Sender: FDA-Public Use
  Company Number: GB-MACLEODS PHARMACEUTICALS US LTD-MAC2023041418

PATIENT

DRUGS (2)
  1. VALSARTAN [Suspect]
     Active Substance: VALSARTAN
     Indication: Hypertension
     Dosage: UNK
     Route: 065
  2. VALSARTAN [Suspect]
     Active Substance: VALSARTAN
     Dosage: 80 MILLIGRAM, QD, TABLET
     Route: 065
     Dates: start: 20230406, end: 20230429

REACTIONS (6)
  - Cough [Not Recovered/Not Resolved]
  - Dizziness [Unknown]
  - Retching [Unknown]
  - Vomiting [Unknown]
  - Urinary incontinence [Unknown]
  - Nausea [Unknown]

NARRATIVE: CASE EVENT DATE: 20230406
